FAERS Safety Report 11791878 (Version 2)
Quarter: 2016Q1

REPORT INFORMATION
  Report Type: Spontaneous
  Country: US (occurrence: US)
  Receive Date: 20151201
  Receipt Date: 20160118
  Transmission Date: 20160525
  Serious: Yes (Other)
  Sender: FDA-Public Use
  Company Number: US-GLAXOSMITHKLINE-US2015170518

PATIENT
  Sex: Female

DRUGS (5)
  1. VITAMIN D [Concomitant]
     Active Substance: CHOLECALCIFEROL
  2. ADVAIR HFA [Suspect]
     Active Substance: FLUTICASONE PROPIONATE\SALMETEROL XINAFOATE
     Indication: ASTHMA
     Dosage: 2 PUFF(S), 1D
     Route: 055
     Dates: start: 2008
  3. NASONEX [Concomitant]
     Active Substance: MOMETASONE FUROATE
  4. PREVACID [Concomitant]
     Active Substance: LANSOPRAZOLE
  5. PROVIGIL [Concomitant]
     Active Substance: MODAFINIL

REACTIONS (7)
  - Upper respiratory tract infection [Recovering/Resolving]
  - Retinal tear [Unknown]
  - Eye laser surgery [Unknown]
  - Off label use [Unknown]
  - Blood pressure increased [Not Recovered/Not Resolved]
  - Blood glucose increased [Recovered/Resolved]
  - Cataract [Not Recovered/Not Resolved]

NARRATIVE: CASE EVENT DATE: 2008
